FAERS Safety Report 6568722-4 (Version None)
Quarter: 2010Q1

REPORT INFORMATION
  Report Type: 
  Country: None (occurrence: None)
  Receive Date: 20100203
  Receipt Date: 20100128
  Transmission Date: 20100710
  Serious: Yes (Other)
  Sender: FDA-Public Use
  Company Number: PHEH2010US01506

PATIENT
  Sex: Male

DRUGS (3)
  1. EXFORGE [Suspect]
     Indication: HYPERTENSION
     Dosage: 160/ 10 MG DAILY
     Dates: end: 20091201
  2. EXFORGE [Suspect]
     Dosage: 320/ 10 MG DAILY
     Dates: start: 20091201
  3. EXFORGE [Suspect]
     Dosage: 160/ 10 MG DAILY
     Dates: start: 20100101

REACTIONS (2)
  - DISABILITY [None]
  - DIZZINESS [None]
